FAERS Safety Report 8609669-9 (Version None)
Quarter: 2012Q3

REPORT INFORMATION
  Report Type: 
  Country: None (occurrence: None)
  Receive Date: 20120821
  Receipt Date: 20120813
  Transmission Date: 20120928
  Serious: Yes (Other)
  Sender: FDA-Public Use
  Company Number: PHHY2012IT070091

PATIENT
  Age: 50 Year
  Sex: Male

DRUGS (2)
  1. KETOPROFEN [Suspect]
     Dosage: 200 MG/DAY
  2. MINIRIN [Suspect]
     Dosage: 4 DF, UNK

REACTIONS (6)
  - GRAND MAL CONVULSION [None]
  - HYPONATRAEMIA [None]
  - COMA [None]
  - DRUG INTERACTION [None]
  - NAUSEA [None]
  - ASTHENIA [None]
